FAERS Safety Report 17426373 (Version 2)
Quarter: 2020Q1

REPORT INFORMATION
  Report Type: Report from Study
  Country: FR (occurrence: FR)
  Receive Date: 20200217
  Receipt Date: 20200311
  Transmission Date: 20200409
  Serious: Yes (Hospitalization)
  Sender: FDA-Public Use
  Company Number: FR-PFIZER INC-2020064293

PATIENT
  Age: 61 Year
  Sex: Female

DRUGS (3)
  1. TRASTUZUMAB. [Suspect]
     Active Substance: TRASTUZUMAB
     Indication: NON-SMALL CELL LUNG CANCER
     Dosage: 8 MG/KG, ON DAY 2 OF CYCLE 1
     Route: 065
     Dates: start: 20191024, end: 20191205
  2. DOCETAXEL. [Suspect]
     Active Substance: DOCETAXEL
     Indication: NON-SMALL CELL LUNG CANCER
     Dosage: 75 MG/M2, ON DAY 2 OF CYCLE 1)
     Route: 065
     Dates: start: 20191024, end: 20191205
  3. PERTUZUMAB. [Suspect]
     Active Substance: PERTUZUMAB
     Indication: NON-SMALL CELL LUNG CANCER
     Dosage: 840 MG,  ON DAY 1 OF CYCLE 1
     Route: 065
     Dates: start: 20191024, end: 20191205

REACTIONS (7)
  - Off label use [Unknown]
  - Dehydration [Recovered/Resolved]
  - Renal disorder [Not Recovered/Not Resolved]
  - Product use in unapproved indication [Unknown]
  - Hypokalaemia [Recovered/Resolved]
  - Urinary tract disorder [Not Recovered/Not Resolved]
  - Hyponatraemia [Recovered/Resolved]

NARRATIVE: CASE EVENT DATE: 20191223
